FAERS Safety Report 12248318 (Version 1)
Quarter: 2016Q2

REPORT INFORMATION
  Report Type: Report from Study
  Country: BR (occurrence: BR)
  Receive Date: 20160408
  Receipt Date: 20160408
  Transmission Date: 20160815
  Serious: Yes (Other)
  Sender: FDA-Public Use
  Company Number: BR-BAYER-2016-063201

PATIENT
  Age: 29 Year
  Sex: Female

DRUGS (1)
  1. BETAFERON [Suspect]
     Active Substance: INTERFERON BETA-1B
     Indication: COXSACKIE VIRAL INFECTION
     Dosage: 1 ML, QOD
     Route: 058
     Dates: start: 201501, end: 201507

REACTIONS (7)
  - Menstruation irregular [Not Recovered/Not Resolved]
  - Lung disorder [None]
  - Off label use [None]
  - Depression [Not Recovered/Not Resolved]
  - Blood testosterone decreased [Recovered/Resolved]
  - Injection site pain [None]
  - Progesterone decreased [Recovered/Resolved]

NARRATIVE: CASE EVENT DATE: 201501
